FAERS Safety Report 12333038 (Version 1)
Quarter: 2016Q2

REPORT INFORMATION
  Report Type: Spontaneous
  Country: FR (occurrence: FR)
  Receive Date: 20160504
  Receipt Date: 20160504
  Transmission Date: 20160815
  Serious: Yes (Other)
  Sender: FDA-Public Use
  Company Number: FR-PFIZER INC-2016237653

PATIENT
  Age: 29 Year
  Sex: Female

DRUGS (6)
  1. ELOXATIN [Suspect]
     Active Substance: OXALIPLATIN
     Indication: CHEMOTHERAPY
     Dosage: 110 MG
     Route: 042
     Dates: start: 20150805, end: 20150805
  2. CALCIUM GLUCONATE. [Suspect]
     Active Substance: CALCIUM GLUCONATE
     Indication: PREMEDICATION
     Dosage: 1 MG
     Dates: start: 20150805, end: 20150805
  3. SOLU-MEDROL [Suspect]
     Active Substance: METHYLPREDNISOLONE SODIUM SUCCINATE
     Indication: PREMEDICATION
     Dosage: 120 MG/2ML
     Route: 042
     Dates: start: 20150805, end: 20150805
  4. FOLINIC ACID [Suspect]
     Active Substance: LEUCOVORIN
     Indication: PREMEDICATION
     Dosage: 260 MG
     Dates: start: 20150805, end: 20150805
  5. ZOPHREN [Suspect]
     Active Substance: ONDANSETRON
     Indication: PREMEDICATION
     Dosage: 8 MG
     Route: 048
     Dates: start: 20150805, end: 20150805
  6. MAGNESIUM SULFATE. [Suspect]
     Active Substance: MAGNESIUM SULFATE
     Indication: PREMEDICATION
     Dosage: UNK
     Dates: start: 20150805, end: 20150805

REACTIONS (4)
  - Formication [Recovered/Resolved]
  - Erythema [Recovered/Resolved]
  - Anaphylactic reaction [Recovered/Resolved]
  - Paraesthesia [Recovered/Resolved]

NARRATIVE: CASE EVENT DATE: 20150805
